FAERS Safety Report 15565097 (Version 2)
Quarter: 2018Q4

REPORT INFORMATION
  Report Type: Spontaneous
  Country: US (occurrence: US)
  Receive Date: 20181030
  Receipt Date: 20181106
  Transmission Date: 20190205
  Serious: Yes (Hospitalization)
  Sender: FDA-Public Use
  Company Number: US-PFIZER INC-2018435530

PATIENT
  Age: 59 Year
  Sex: Female
  Weight: 73.16 kg

DRUGS (8)
  1. GABAPENTIN. [Suspect]
     Active Substance: GABAPENTIN
     Indication: HYPOAESTHESIA
  2. GABAPENTIN. [Suspect]
     Active Substance: GABAPENTIN
     Indication: PAIN IN EXTREMITY
  3. TRINTELLIX [Concomitant]
     Active Substance: VORTIOXETINE HYDROBROMIDE
     Dosage: UNK
  4. GABAPENTIN. [Suspect]
     Active Substance: GABAPENTIN
     Indication: SPINAL CORD DISORDER
     Dosage: 600 MG, 3X/DAY
     Route: 048
     Dates: start: 20141018
  5. TRINTELLIX [Concomitant]
     Active Substance: VORTIOXETINE HYDROBROMIDE
     Dosage: 20 MG, DAILY
     Route: 048
     Dates: start: 201807
  6. GABAPENTIN. [Suspect]
     Active Substance: GABAPENTIN
     Indication: MYELITIS TRANSVERSE
     Dosage: 300 MG, DAILY
     Route: 048
  7. GABAPENTIN. [Suspect]
     Active Substance: GABAPENTIN
     Indication: NEURALGIA
  8. GABAPENTIN. [Suspect]
     Active Substance: GABAPENTIN
     Indication: PAIN

REACTIONS (10)
  - Weight increased [Not Recovered/Not Resolved]
  - Coordination abnormal [Not Recovered/Not Resolved]
  - Fatigue [Not Recovered/Not Resolved]
  - Fall [Unknown]
  - Amnesia [Not Recovered/Not Resolved]
  - Product use in unapproved indication [Unknown]
  - Somnolence [Not Recovered/Not Resolved]
  - Aphasia [Not Recovered/Not Resolved]
  - Diplegia [Recovered/Resolved]
  - Food craving [Unknown]

NARRATIVE: CASE EVENT DATE: 201410
